FAERS Safety Report 11695380 (Version 1)
Quarter: 2015Q4

REPORT INFORMATION
  Report Type: Report from Study
  Country: US (occurrence: US)
  Receive Date: 20151104
  Receipt Date: 20151104
  Transmission Date: 20160304
  Serious: Yes (Other)
  Sender: FDA-Public Use
  Company Number: US-AMGEN-USASL2015114767

PATIENT
  Age: 59 Year
  Sex: Female

DRUGS (1)
  1. ENBREL [Suspect]
     Active Substance: ETANERCEPT
     Indication: RHEUMATOID ARTHRITIS
     Dosage: UNK UNK, UNK
     Route: 065
     Dates: start: 201409

REACTIONS (12)
  - Feeling abnormal [Unknown]
  - Nodule [Unknown]
  - Surgery [Unknown]
  - Joint injury [Unknown]
  - Respiratory tract infection [Unknown]
  - Joint swelling [Unknown]
  - Influenza [Unknown]
  - Joint fluid drainage [Unknown]
  - Condition aggravated [Unknown]
  - Diarrhoea [Unknown]
  - Fatigue [Unknown]
  - Blood glucose decreased [Unknown]

NARRATIVE: CASE EVENT DATE: 2014
